FAERS Safety Report 25426332 (Version 1)
Quarter: 2025Q2

REPORT INFORMATION
  Report Type: Spontaneous
  Country: IT (occurrence: IT)
  Receive Date: 20250612
  Receipt Date: 20250612
  Transmission Date: 20250717
  Serious: Yes (Hospitalization, Other)
  Sender: SERVIER
  Company Number: None

PATIENT

DRUGS (10)
  1. PEGASPARGASE [Suspect]
     Active Substance: PEGASPARGASE
     Indication: Leukaemia
     Dosage: 1020 INTERNATIONAL UNIT, QD
     Route: 042
     Dates: start: 20250214, end: 20250214
  2. PEGASPARGASE [Suspect]
     Active Substance: PEGASPARGASE
     Dosage: 960 INTERNATIONAL UNIT, QD
     Route: 042
     Dates: start: 20250314, end: 20250314
  3. BLINATUMOMAB [Suspect]
     Active Substance: BLINATUMOMAB
     Indication: Acute lymphocytic leukaemia recurrent
     Route: 042
     Dates: start: 20250429, end: 20250501
  4. DEXAMETHASONE [Suspect]
     Active Substance: DEXAMETHASONE
     Indication: Leukaemia
     Dosage: 20 MILLIGRAM, QD
     Route: 042
     Dates: start: 20250212, end: 20250216
  5. DEXAMETHASONE [Suspect]
     Active Substance: DEXAMETHASONE
     Dosage: 38 MG, QD
     Route: 042
     Dates: start: 20250305, end: 20250309
  6. VINCRISTINE SULFATE [Suspect]
     Active Substance: VINCRISTINE SULFATE
     Indication: Leukaemia
     Dosage: 1.5 MILLIGRAM, QD
     Route: 042
     Dates: start: 20250214, end: 20250214
  7. VINCRISTINE SULFATE [Suspect]
     Active Substance: VINCRISTINE SULFATE
     Dosage: 1.5 MILLIGRAM, QD
     Route: 042
     Dates: start: 20250221, end: 20250221
  8. VINCRISTINE SULFATE [Suspect]
     Active Substance: VINCRISTINE SULFATE
     Route: 042
     Dates: start: 20250307, end: 20250307
  9. VINCRISTINE SULFATE [Suspect]
     Active Substance: VINCRISTINE SULFATE
     Dosage: 1.44 MILLIGRAM, QD
     Route: 042
     Dates: start: 20250314, end: 20250314
  10. MITOXANTRONE [Suspect]
     Active Substance: MITOXANTRONE HYDROCHLORIDE
     Indication: Leukaemia
     Dosage: 10 MILLIGRAM, QD
     Route: 042
     Dates: start: 20250212, end: 20250213

REACTIONS (6)
  - Neurotoxicity [Recovered/Resolved]
  - Intention tremor [Unknown]
  - Seizure [Recovered/Resolved]
  - Mental status changes [Unknown]
  - Altered state of consciousness [Unknown]
  - Encephalopathy [Unknown]

NARRATIVE: CASE EVENT DATE: 20250501
